FAERS Safety Report 4754687-4 (Version None)
Quarter: 2005Q3

REPORT INFORMATION
  Report Type: 
  Country: None (occurrence: None)
  Receive Date: 20050826
  Receipt Date: 20020618
  Transmission Date: 20060218
  Serious: Yes (Death)
  Sender: FDA-Public Use
  Company Number: USA-2002-0001432

PATIENT
  Age: 31 Year
  Sex: Male
  Weight: 122.4 kg

DRUGS (6)
  1. OXYCODONE HCL [Suspect]
  2. MORPHINE SULFATE [Suspect]
  3. PROPOXYPHENE HCL [Suspect]
  4. ACETAMINOPHEN [Suspect]
  5. CAFFEINE (CAFFEINE) [Suspect]
  6. SERTRALINE HCL [Suspect]

REACTIONS (1)
  - MULTIPLE DRUG OVERDOSE ACCIDENTAL [None]
